FAERS Safety Report 21658813 (Version 1)
Quarter: 2022Q4

REPORT INFORMATION
  Report Type: Spontaneous
  Country: US (occurrence: None)
  Receive Date: 20221128
  Receipt Date: 20221128
  Transmission Date: 20230113
  Serious: No
  Sender: FDA-Public Use
  Company Number: None

PATIENT
  Sex: Female
  Weight: 81.65 kg

DRUGS (1)
  1. DEFINITY [Suspect]
     Active Substance: PERFLUTREN
     Indication: Pulmonary thrombosis
     Dosage: OTHER ROUTE : CONTRAST IV PUSH SONOGRAM OF HEART;?
     Route: 050

REACTIONS (4)
  - Back pain [None]
  - Arthralgia [None]
  - Muscle disorder [None]
  - Pulmonary thrombosis [None]
